FAERS Safety Report 5879926-8 (Version None)
Quarter: 2008Q3

REPORT INFORMATION
  Report Type: 
  Country: None (occurrence: None)
  Receive Date: 20080911
  Receipt Date: 20080911
  Transmission Date: 20090109
  Serious: No
  Sender: FDA-Public Use
  Company Number: None

PATIENT
  Age: 51 Year
  Sex: Female
  Weight: 86.1834 kg

DRUGS (1)
  1. SEROQUEL [Suspect]
     Dosage: 25 MG. 2 AT BEDTIME 200 MG. 2 EVERY 12 HRS
     Dates: start: 20070627, end: 20070925

REACTIONS (2)
  - BLOOD PRESSURE [None]
  - GASTRIC DISORDER [None]
